FAERS Safety Report 9382892 (Version 3)
Quarter: 2013Q3

REPORT INFORMATION
  Report Type: Spontaneous
  Country: US (occurrence: US)
  Receive Date: 20130703
  Receipt Date: 20130708
  Transmission Date: 20140515
  Serious: Yes (Other)
  Sender: FDA-Public Use
  Company Number: US-BAXTER-2013BAX024021

PATIENT
  Sex: Female

DRUGS (2)
  1. LACTATED RINGERS FOR INJECTION [Suspect]
     Indication: DEHYDRATION
     Route: 042
  2. VENOFER [Suspect]
     Indication: MINERAL SUPPLEMENTATION
     Route: 042

REACTIONS (4)
  - Haemoglobin decreased [Recovered/Resolved]
  - Haemorrhage [Recovered/Resolved]
  - Device leakage [Recovered/Resolved]
  - Exposure during pregnancy [Recovered/Resolved]
